FAERS Safety Report 9100335 (Version 3)
Quarter: 2013Q3

REPORT INFORMATION
  Report Type: Spontaneous
  Country: JP (occurrence: JP)
  Receive Date: 20130212
  Receipt Date: 20130719
  Transmission Date: 20140515
  Serious: Yes (Other)
  Sender: FDA-Public Use
  Company Number: JP-ASTELLAS-2013US001420

PATIENT
  Age: 75 Year
  Sex: Male

DRUGS (10)
  1. TARCEVA [Suspect]
     Indication: LUNG ADENOCARCINOMA
     Dosage: 25 MG, UID/QD
     Route: 048
     Dates: start: 20121127, end: 20121210
  2. TARCEVA [Suspect]
     Dosage: 50 MG, UID/QD
     Route: 048
     Dates: start: 20121211, end: 20130107
  3. TARCEVA [Suspect]
     Dosage: 100 MG, UID/QD
     Route: 048
     Dates: start: 20130108, end: 20130121
  4. CARBOPLATIN [Concomitant]
     Indication: PRODUCT USED FOR UNKNOWN INDICATION
     Dosage: UNK
     Route: 041
  5. ALIMTA [Concomitant]
     Indication: PRODUCT USED FOR UNKNOWN INDICATION
     Dosage: UNK
     Route: 041
  6. AVASTIN                            /01555201/ [Concomitant]
     Indication: PRODUCT USED FOR UNKNOWN INDICATION
     Dosage: UNK
     Route: 042
     Dates: start: 20130213
  7. HIRUDOID                           /00723701/ [Concomitant]
     Indication: PRODUCT USED FOR UNKNOWN INDICATION
     Dosage: UNK
     Route: 062
     Dates: start: 20120921
  8. LOCOID [Concomitant]
     Indication: PRODUCT USED FOR UNKNOWN INDICATION
     Dosage: UNK
     Route: 062
     Dates: start: 20121009
  9. MYSER                              /01249201/ [Concomitant]
     Indication: PRODUCT USED FOR UNKNOWN INDICATION
     Dosage: UNK
     Route: 062
     Dates: start: 20130107
  10. XYZAL [Concomitant]
     Indication: PRODUCT USED FOR UNKNOWN INDICATION
     Dosage: 5 MG, UID/QD
     Route: 048
     Dates: start: 20130107

REACTIONS (2)
  - Incorrect dose administered [Unknown]
  - Blood creatine phosphokinase increased [Recovered/Resolved]
